FAERS Safety Report 8326378-4 (Version None)
Quarter: 2012Q2

REPORT INFORMATION
  Report Type: 
  Country: None (occurrence: None)
  Receive Date: 20120501
  Receipt Date: 20090629
  Transmission Date: 20120825
  Serious: No
  Sender: FDA-Public Use
  Company Number: US-TEVA-2009008001

PATIENT
  Sex: Male
  Weight: 88.53 kg

DRUGS (8)
  1. VYTORIN [Concomitant]
  2. OXOARDAZEPINE [Concomitant]
  3. CITALOPRAM [Concomitant]
  4. TRAZODONE HCL [Concomitant]
  5. RISPERDAL [Concomitant]
  6. NUVIGIL [Suspect]
     Indication: ASTHENIA
     Dosage: 75 MILLIGRAM;
     Route: 048
     Dates: start: 20090629
  7. NUVIGIL [Suspect]
     Indication: BRAIN INJURY
  8. ARICEPT [Concomitant]

REACTIONS (5)
  - NERVOUSNESS [None]
  - DRUG INEFFECTIVE FOR UNAPPROVED INDICATION [None]
  - IRRITABILITY [None]
  - VISUAL IMPAIRMENT [None]
  - DIZZINESS [None]
